FAERS Safety Report 16707871 (Version 2)
Quarter: 2019Q3

REPORT INFORMATION
  Report Type: Other
  Country: US (occurrence: US)
  Receive Date: 20190815
  Receipt Date: 20190921
  Transmission Date: 20191004
  Serious: Yes (Other)
  Sender: FDA-Public Use
  Company Number: US-PRINSTON PHARMACEUTICAL INC.-2019PRN00745

PATIENT
  Age: 56 Year
  Sex: Female
  Weight: 81.63 kg

DRUGS (6)
  1. LEVOTHYROXINE. [Concomitant]
     Active Substance: LEVOTHYROXINE
  2. FISH OIL [Concomitant]
     Active Substance: FISH OIL
  3. BUPROPION HYDROCHLORIDE. [Suspect]
     Active Substance: BUPROPION HYDROCHLORIDE
     Dosage: 300 MG, 1X/DAY IN THE MORNING
     Route: 048
     Dates: start: 20190618, end: 20190718
  4. SERTRALINE [Concomitant]
     Active Substance: SERTRALINE HYDROCHLORIDE
  5. BUPROPION HYDROCHLORIDE. [Suspect]
     Active Substance: BUPROPION HYDROCHLORIDE
     Indication: DEPRESSION
     Dosage: UNK
  6. METAXALONE. [Concomitant]
     Active Substance: METAXALONE

REACTIONS (7)
  - Arthropathy [Unknown]
  - Femur fracture [Recovering/Resolving]
  - Fall [Recovering/Resolving]
  - Suicidal ideation [Recovered/Resolved]
  - Performance status decreased [Recovered/Resolved]
  - Drug ineffective [Recovered/Resolved]
  - Product substitution issue [Recovered/Resolved]

NARRATIVE: CASE EVENT DATE: 20190517
